FAERS Safety Report 9893545 (Version 2)
Quarter: 2014Q1

REPORT INFORMATION
  Report Type: Spontaneous
  Country: IT (occurrence: IT)
  Receive Date: 20140213
  Receipt Date: 20140220
  Transmission Date: 20141002
  Serious: Yes (Hospitalization, Other)
  Sender: FDA-Public Use
  Company Number: IT-AMGEN-ITASP2014009665

PATIENT
  Age: 53 Year
  Sex: Female

DRUGS (6)
  1. ENBREL [Suspect]
     Indication: PSORIATIC ARTHROPATHY
     Dosage: 50 MG, WEEKLY
     Route: 058
     Dates: start: 20130301, end: 20131015
  2. METHOTREXATE [Suspect]
     Indication: PSORIATIC ARTHROPATHY
     Dosage: 15 MG, WEEKLY
     Route: 030
     Dates: start: 20120901, end: 20131015
  3. LOZID [Concomitant]
     Dosage: UNK
  4. ESOPRAL                            /01479301/ [Concomitant]
     Dosage: UNK
  5. LYRICA [Concomitant]
     Dosage: UNK
  6. MEDROL                             /00049601/ [Concomitant]
     Dosage: UNK

REACTIONS (2)
  - Mediastinum neoplasm [Unknown]
  - Lung neoplasm [Unknown]
